FAERS Safety Report 11876620 (Version 1)
Quarter: 2015Q4

REPORT INFORMATION
  Report Type: Spontaneous
  Country: US (occurrence: US)
  Receive Date: 20151229
  Receipt Date: 20151229
  Transmission Date: 20160305
  Serious: Yes (Other)
  Sender: FDA-Public Use
  Company Number: US-PFIZER INC-2015459878

PATIENT
  Age: 16 Year
  Sex: Female
  Weight: 56.7 kg

DRUGS (2)
  1. GABAPENTIN. [Suspect]
     Active Substance: GABAPENTIN
     Indication: HYPERSENSITIVITY
  2. GABAPENTIN. [Suspect]
     Active Substance: GABAPENTIN
     Indication: HEART RATE INCREASED
     Dosage: 2 DF, 3X/DAY
     Route: 048
     Dates: start: 20151210, end: 20151216

REACTIONS (12)
  - Emotional disorder [Unknown]
  - Suicidal behaviour [Unknown]
  - Personality change [Not Recovered/Not Resolved]
  - Crying [Unknown]
  - Anger [Unknown]
  - Mood altered [Unknown]
  - Contusion [Unknown]
  - Product use issue [Unknown]
  - Memory impairment [Unknown]
  - Abnormal behaviour [Recovered/Resolved]
  - Depressed mood [Unknown]
  - Confusional state [Not Recovered/Not Resolved]

NARRATIVE: CASE EVENT DATE: 20151214
